APPROVED DRUG PRODUCT: PRO-BANTHINE
Active Ingredient: PROPANTHELINE BROMIDE
Strength: 15MG **Federal Register determination that product was not discontinued or withdrawn for safety or effectiveness reasons**
Dosage Form/Route: TABLET;ORAL
Application: N008732 | Product #002
Applicant: SHIRE DEVELOPMENT INC
Approved: Approved Prior to Jan 1, 1982 | RLD: Yes | RS: No | Type: DISCN